FAERS Safety Report 26134977 (Version 1)
Quarter: 2025Q4

REPORT INFORMATION
  Report Type: Spontaneous
  Country: US (occurrence: US)
  Receive Date: 20251209
  Receipt Date: 20251209
  Transmission Date: 20260118
  Serious: Yes (Hospitalization, Other)
  Sender: GLENMARK
  Company Number: US-MLMSERVICE-20251121-PI722655-00217-1

PATIENT
  Age: 36 Year
  Sex: Male

DRUGS (3)
  1. METFORMIN HYDROCHLORIDE [Suspect]
     Active Substance: METFORMIN HYDROCHLORIDE
     Indication: Type 2 diabetes mellitus
     Dosage: 1000 MILLIGRAM EVERY 4 HRS
     Route: 065
  2. METFORMIN HYDROCHLORIDE [Suspect]
     Active Substance: METFORMIN HYDROCHLORIDE
     Dosage: 1000 MILLIGRAM EVERY 4 HRS FOLLOWED BY ANOTHER DOSE IN FOUR HOURS (TOTAL: 2,000MG)
     Route: 065
  3. EMPAGLIFLOZIN [Suspect]
     Active Substance: EMPAGLIFLOZIN
     Indication: Type 2 diabetes mellitus
     Dosage: 25 MILLIGRAM, QD (ONE-TIME DOSE OF EMPAGLIFLOZIN 25 MG)
     Route: 065

REACTIONS (6)
  - Euglycaemic diabetic ketoacidosis [Recovered/Resolved]
  - Hyperkalaemia [Recovered/Resolved]
  - Metabolic acidosis [Recovered/Resolved]
  - Lactic acidosis [Recovered/Resolved]
  - Intentional product misuse [Unknown]
  - Treatment noncompliance [Unknown]
